FAERS Safety Report 4582807-3 (Version None)
Quarter: 2005Q1

REPORT INFORMATION
  Report Type: 
  Country: None (occurrence: None)
  Receive Date: 20050121
  Receipt Date: 20041102
  Transmission Date: 20050727
  Serious: Yes (Other)
  Sender: FDA-Public Use
  Company Number: 2004103597

PATIENT
  Age: 30 Year
  Sex: Male

DRUGS (1)
  1. RELPAX [Suspect]
     Indication: MIGRAINE
     Dosage: 20 MG (20 MG,QD INTERVAL: DAILY),ORAL
     Route: 048
     Dates: start: 20040801, end: 20040801

REACTIONS (1)
  - HYPOAESTHESIA [None]
